FAERS Safety Report 20934500 (Version 1)
Quarter: 2022Q2

REPORT INFORMATION
  Report Type: Other
  Country: PL (occurrence: None)
  Receive Date: 20220608
  Receipt Date: 20220608
  Transmission Date: 20220721
  Serious: Yes (Hospitalization)
  Sender: FDA-Public Use
  Company Number: PL-DEXPHARM-20220879

PATIENT
  Age: 70 Year
  Sex: Male

DRUGS (7)
  1. DULOXETINE [Interacting]
     Active Substance: DULOXETINE
     Dosage: 30 MG ONE TABLET/DAY
  2. ASPIRIN [Interacting]
     Active Substance: ASPIRIN
     Dosage: 75 MG ONE TABLET/DAY
  3. CELECOXIB [Interacting]
     Active Substance: CELECOXIB
  4. DICLOFENAC [Interacting]
     Active Substance: DICLOFENAC
  5. KETOPROFEN [Interacting]
     Active Substance: KETOPROFEN
  6. NIMESULIDE [Interacting]
     Active Substance: NIMESULIDE
  7. INDAPAMIDE [Interacting]
     Active Substance: INDAPAMIDE
     Indication: Diuretic therapy
     Dosage: 1.5 MG ONE TABLET/DAY

REACTIONS (3)
  - Hyponatraemia [Unknown]
  - Urinary retention [Unknown]
  - Drug interaction [Unknown]
